FAERS Safety Report 11716161 (Version 2)
Quarter: 2015Q4

REPORT INFORMATION
  Report Type: Spontaneous
  Country: US (occurrence: US)
  Receive Date: 20151104
  Receipt Date: 20151110
  Transmission Date: 20160304
  Serious: No
  Sender: FDA-Public Use
  Company Number: US-ELI_LILLY_AND_COMPANY-US201103005778

PATIENT
  Sex: Female

DRUGS (1)
  1. FORTEO [Suspect]
     Active Substance: TERIPARATIDE
     Indication: OSTEOPOROSIS
     Dosage: UNK, UNKNOWN
     Route: 065

REACTIONS (6)
  - Limb discomfort [Unknown]
  - Injection site bruising [Unknown]
  - Arthritis [Unknown]
  - Increased tendency to bruise [Not Recovered/Not Resolved]
  - Arthropathy [Unknown]
  - Hypokinesia [Unknown]
